FAERS Safety Report 16379737 (Version 3)
Quarter: 2019Q3

REPORT INFORMATION
  Report Type: Spontaneous
  Country: FR (occurrence: FR)
  Receive Date: 20190531
  Receipt Date: 20190812
  Transmission Date: 20191004
  Serious: No
  Sender: FDA-Public Use
  Company Number: FR-009507513-1905FRA013312

PATIENT
  Age: 84 Year
  Sex: Male

DRUGS (4)
  1. EZETIMIBE. [Suspect]
     Active Substance: EZETIMIBE
     Indication: PROPHYLAXIS
     Dosage: UNK
     Dates: start: 2017
  2. ATORVASTATIN [Concomitant]
     Active Substance: ATORVASTATIN
     Indication: CARDIOVASCULAR EVENT PROPHYLAXIS
     Dosage: 10 MILLIGRAM, 3 TIMES PER WEEK
  3. ATORVASTATIN [Concomitant]
     Active Substance: ATORVASTATIN
     Dosage: 10 MILLIGRAM, 5 TIMES PER WEEK
  4. ASPIRIN. [Concomitant]
     Active Substance: ASPIRIN
     Indication: STENOSIS
     Dosage: 75 MILLIGRAM / DAY

REACTIONS (1)
  - Product use issue [Unknown]
